FAERS Safety Report 11706227 (Version 2)
Quarter: 2015Q4

REPORT INFORMATION
  Report Type: Report from Study
  Country: CH (occurrence: CH)
  Receive Date: 20151106
  Receipt Date: 20151209
  Transmission Date: 20160304
  Serious: Yes (Hospitalization)
  Sender: FDA-Public Use
  Company Number: CH-ABBVIE-15P-151-1494461-00

PATIENT
  Sex: Male

DRUGS (1)
  1. DUODOPA [Suspect]
     Active Substance: CARBIDOPA\LEVODOPA
     Indication: PARKINSON^S DISEASE
     Dosage: MD 9.3ML, CD:3.2ML/H, EXTRA DOSE 2.3ML
     Route: 050
     Dates: start: 20150610

REACTIONS (4)
  - Osteoarthritis [Unknown]
  - Chest injury [Unknown]
  - Fall [Unknown]
  - Pain [Unknown]
